FAERS Safety Report 7400400-1 (Version None)
Quarter: 2011Q2

REPORT INFORMATION
  Report Type: 
  Country: None (occurrence: None)
  Receive Date: 20110407
  Receipt Date: 20110330
  Transmission Date: 20111010
  Serious: Yes (Other)
  Sender: FDA-Public Use
  Company Number: TW-JNJFOC-20110400822

PATIENT

DRUGS (5)
  1. DURAGESIC [Suspect]
     Indication: PAIN
     Route: 062
  2. TS-1 [Suspect]
     Indication: NEOPLASM
     Route: 065
  3. ULTRACET [Suspect]
     Indication: PAIN
     Route: 048
  4. SORAFENIB [Suspect]
     Indication: NEOPLASM
     Route: 065
  5. MORPHINE [Suspect]
     Indication: ANALGESIC THERAPY
     Route: 048

REACTIONS (2)
  - ABDOMINAL PAIN [None]
  - DELIRIUM [None]
